FAERS Safety Report 6886066-8 (Version None)
Quarter: 2010Q3

REPORT INFORMATION
  Report Type: 
  Country: None (occurrence: None)
  Receive Date: 20100729
  Receipt Date: 20080523
  Transmission Date: 20110219
  Serious: No
  Sender: FDA-Public Use
  Company Number: US-PFIZER INC-2008045374

PATIENT
  Sex: Female

DRUGS (7)
  1. CELEBREX [Suspect]
     Indication: ARTHRITIS
     Dates: start: 20071127, end: 20080501
  2. HYDROCHLOROTHIAZIDE [Suspect]
  3. FOLIC ACID [Concomitant]
  4. SYNTHROID [Concomitant]
  5. PENTOXIFYLLINE [Concomitant]
  6. PENTOXIFYLLINE [Concomitant]
  7. ZOLOFT [Concomitant]

REACTIONS (1)
  - RASH [None]
